FAERS Safety Report 6693657-6 (Version None)
Quarter: 2010Q2

REPORT INFORMATION
  Report Type: 
  Country: None (occurrence: None)
  Receive Date: 20100421
  Receipt Date: 20100408
  Transmission Date: 20101027
  Serious: Yes (Hospitalization, Disabling, Other)
  Sender: FDA-Public Use
  Company Number: 230516J10USA

PATIENT
  Age: 78 Year
  Sex: Male

DRUGS (6)
  1. REBIF [Suspect]
     Indication: MULTIPLE SCLEROSIS
     Dosage: 44 MCG, 3 IN 1 WK, SUBCUTANEOUS
     Route: 058
     Dates: start: 20021107
  2. COUMADIN [Concomitant]
  3. BACLOFEN [Concomitant]
  4. PRIMIDONE [Concomitant]
  5. PROPRANOLOL [Concomitant]
  6. NEURONTIN [Concomitant]

REACTIONS (12)
  - BEDRIDDEN [None]
  - CARDIAC DISORDER [None]
  - CARDIAC FAILURE CONGESTIVE [None]
  - GANGRENE [None]
  - GASTRIC HAEMORRHAGE [None]
  - HYPERTENSION [None]
  - HYPOTENSION [None]
  - IRON OVERLOAD [None]
  - MULTIPLE SCLEROSIS RELAPSE [None]
  - POOR PERIPHERAL CIRCULATION [None]
  - URINARY INCONTINENCE [None]
  - URINARY TRACT INFECTION [None]
